FAERS Safety Report 9064968 (Version 2)
Quarter: 2013Q3

REPORT INFORMATION
  Report Type: Report from Study
  Country: BR (occurrence: BR)
  Receive Date: 20130206
  Receipt Date: 20130809
  Transmission Date: 20140515
  Serious: Yes (Death)
  Sender: FDA-Public Use
  Company Number: BR-BAYER-2013-013746

PATIENT
  Age: 0 None
  Sex: 0

DRUGS (1)
  1. BETAFERON [Suspect]
     Dosage: UNK
     Route: 064

REACTIONS (3)
  - Pulmonary haemorrhage [Fatal]
  - Premature baby [Fatal]
  - Maternal exposure during pregnancy [None]
